FAERS Safety Report 16002276 (Version 1)
Quarter: 2019Q1

REPORT INFORMATION
  Report Type: Spontaneous
  Country: US (occurrence: US)
  Receive Date: 20190225
  Receipt Date: 20190225
  Transmission Date: 20190418
  Serious: No
  Sender: FDA-Public Use
  Company Number: US-IGSA-SR10006498

PATIENT
  Age: 57 Year
  Sex: Female
  Weight: 80 kg

DRUGS (15)
  1. PRILOSEC [Concomitant]
     Active Substance: OMEPRAZOLE MAGNESIUM
  2. TRAZODONE [Concomitant]
     Active Substance: TRAZODONE HYDROCHLORIDE
  3. FLUOCINONIDE. [Concomitant]
     Active Substance: FLUOCINONIDE
  4. CALCIUM [Concomitant]
     Active Substance: CALCIUM
  5. DIFLUCAN [Concomitant]
     Active Substance: FLUCONAZOLE
  6. HYPERSAL [Concomitant]
  7. CELEBREX [Concomitant]
     Active Substance: CELECOXIB
  8. ZYRTEC [Concomitant]
     Active Substance: CETIRIZINE HYDROCHLORIDE
  9. PROLASTIN-C [Suspect]
     Active Substance: .ALPHA.1-PROTEINASE INHIBITOR HUMAN
     Indication: EMPHYSEMA
     Dosage: 4758 MG, Q.WK.
     Route: 042
     Dates: start: 201001
  10. MUCINEX DM [Concomitant]
     Active Substance: DEXTROMETHORPHAN HYDROBROMIDE\GUAIFENESIN
     Indication: UPPER-AIRWAY COUGH SYNDROME
  11. PROLASTIN [Suspect]
     Active Substance: .ALPHA.1-PROTEINASE INHIBITOR HUMAN
     Indication: ALPHA-1 ANTI-TRYPSIN DEFICIENCY
     Dosage: 60 MG/KG, Q.WK.
     Route: 042
     Dates: start: 20091118, end: 2010
  12. PROLASTIN-C [Suspect]
     Active Substance: .ALPHA.1-PROTEINASE INHIBITOR HUMAN
     Indication: ALPHA-1 ANTI-TRYPSIN DEFICIENCY
     Dosage: 4758 MG, Q.WK.
     Route: 042
     Dates: start: 20180525
  13. ALBUTEROL                          /00139501/ [Concomitant]
     Active Substance: ALBUTEROL
  14. VITAMIN D3 [Concomitant]
     Active Substance: CHOLECALCIFEROL
  15. OXYGEN. [Concomitant]
     Active Substance: OXYGEN

REACTIONS (3)
  - Vomiting [Recovering/Resolving]
  - Nausea [Recovering/Resolving]
  - Glossodynia [Not Recovered/Not Resolved]

NARRATIVE: CASE EVENT DATE: 20091118
